FAERS Safety Report 11747487 (Version 1)
Quarter: 2015Q4

REPORT INFORMATION
  Report Type: Spontaneous
  Country: GT (occurrence: GT)
  Receive Date: 20151117
  Receipt Date: 20151117
  Transmission Date: 20160304
  Serious: Yes (Other)
  Sender: FDA-Public Use
  Company Number: GT-TAKEDA-2015MPI007649

PATIENT

DRUGS (1)
  1. VELCADE [Suspect]
     Active Substance: BORTEZOMIB
     Indication: PRODUCT USED FOR UNKNOWN INDICATION
     Dosage: 1.3 MG/M2, UNK
     Route: 065

REACTIONS (2)
  - Diarrhoea [Unknown]
  - Blood creatinine abnormal [Unknown]
